FAERS Safety Report 15033067 (Version 1)
Quarter: 2018Q3

REPORT INFORMATION
  Report Type: Spontaneous
  Country: US (occurrence: US)
  Receive Date: 20180619
  Receipt Date: 20180619
  Transmission Date: 20181010
  Serious: No
  Sender: FDA-Public Use
  Company Number: US-AVADEL SPECIALTY PHARMACEUTICALS, LLC-2018AVA00035

PATIENT
  Age: 64 Year
  Sex: Male
  Weight: 78.5 kg

DRUGS (1)
  1. NOCTIVA [Suspect]
     Active Substance: DESMOPRESSIN ACETATE
     Indication: NOCTURIA
     Dosage: 0.83 ?G, 1X/DAY
     Route: 045
     Dates: start: 20180411, end: 201804

REACTIONS (9)
  - Urine flow decreased [Not Recovered/Not Resolved]
  - Urinary hesitation [Not Recovered/Not Resolved]
  - Nocturia [Not Recovered/Not Resolved]
  - Rhinorrhoea [Recovered/Resolved]
  - Unevaluable event [Unknown]
  - Drug ineffective [Recovered/Resolved]
  - Prostatic specific antigen decreased [Unknown]
  - Sneezing [Recovered/Resolved]
  - Laboratory test abnormal [None]

NARRATIVE: CASE EVENT DATE: 201804
